FAERS Safety Report 9173579 (Version 1)
Quarter: 2013Q1

REPORT INFORMATION
  Report Type: Report from Study
  Country: CA (occurrence: CA)
  Receive Date: 20130320
  Receipt Date: 20130320
  Transmission Date: 20140127
  Serious: Yes (Hospitalization)
  Sender: FDA-Public Use
  Company Number: CA-UCBSA-080974

PATIENT
  Age: 58 Year
  Sex: Female
  Weight: 72 kg

DRUGS (8)
  1. CIMZIA [Suspect]
     Indication: RHEUMATOID ARTHRITIS
     Route: 058
     Dates: start: 20130201, end: 20130301
  2. CIMZIA [Suspect]
     Indication: RHEUMATOID ARTHRITIS
     Route: 058
     Dates: start: 20120302, end: 20121010
  3. CIMZIA [Suspect]
     Indication: RHEUMATOID ARTHRITIS
     Dosage: Q2 WEEKS X 3
     Route: 058
     Dates: start: 20120120, end: 20120217
  4. FOLIC ACID [Concomitant]
     Route: 048
     Dates: start: 2005, end: 2013
  5. PLAQUENIL [Concomitant]
     Indication: RHEUMATOID ARTHRITIS
     Route: 048
     Dates: start: 200905, end: 2013
  6. METHOTREXATE [Concomitant]
     Indication: RHEUMATOID ARTHRITIS
     Route: 048
     Dates: start: 2005, end: 2013
  7. DICLOFENAC [Concomitant]
     Indication: RHEUMATOID ARTHRITIS
     Dosage: 75 SR MG
     Route: 048
  8. PANTOLOC [Concomitant]
     Route: 048

REACTIONS (2)
  - Urinary tract infection [Recovering/Resolving]
  - Headache [Recovered/Resolved]
